FAERS Safety Report 18146004 (Version 2)
Quarter: 2020Q3

REPORT INFORMATION
  Report Type: Report from Study
  Country: DE (occurrence: DE)
  Receive Date: 20200813
  Receipt Date: 20200904
  Transmission Date: 20201103
  Serious: Yes (Life-Threatening, Other)
  Sender: FDA-Public Use
  Company Number: DE-PFIZER INC-2020305381

PATIENT
  Age: 54 Year
  Sex: Female
  Weight: 120 kg

DRUGS (9)
  1. HYDROMORPHONE [Concomitant]
     Active Substance: HYDROMORPHONE
     Dosage: 4 MG, 2X/DAY (IN THE MORNING, IN THE EVENING)
     Route: 048
     Dates: start: 20200323, end: 20200404
  2. CHOLESTYRAMIN [Concomitant]
     Active Substance: CHOLESTYRAMINE
     Indication: PRURITUS
     Dosage: UNK
     Route: 065
     Dates: start: 20200619, end: 20200624
  3. KISQALI [Suspect]
     Active Substance: RIBOCICLIB
     Indication: BREAST CANCER METASTATIC
     Dosage: 600 MG, 1X/DAY (SCHEME 21 DAYS INTAKE, 7 DAYS PAUSE)
     Route: 048
     Dates: start: 20200326, end: 20200616
  4. TARGIN [Suspect]
     Active Substance: NALOXONE HYDROCHLORIDE\OXYCODONE HYDROCHLORIDE
     Dosage: UNSPECIFIED DOSE, IN THE MORNING, IN THE EVENING
     Route: 048
     Dates: start: 20200518, end: 20200524
  5. LUTEINISING HORMONE (HUMAN) [Concomitant]
     Active Substance: LUTROPIN ALFA
     Indication: BREAST CANCER METASTATIC
     Dosage: UNK
     Dates: start: 20200326
  6. LETROZOLE. [Suspect]
     Active Substance: LETROZOLE
     Indication: BREAST CANCER METASTATIC
     Dosage: 2.5 MG, 1X/DAY
     Route: 048
     Dates: start: 20200326
  7. KISQALI [Suspect]
     Active Substance: RIBOCICLIB
     Dosage: 300 MG, 1X/DAY ((SCHEMA 21 DAYS INTAKE, 7 DAYS PAUSE))
     Route: 048
     Dates: start: 20200714, end: 20200722
  8. IBUPROFEN. [Suspect]
     Active Substance: IBUPROFEN
     Dosage: 400 MG, 3X/DAY (IN THE MORNING, AT NOON, IN THE EVENING)
     Route: 048
     Dates: start: 20200518, end: 20200524
  9. PALLADON [Concomitant]
     Active Substance: HYDROMORPHONE
     Dosage: 1.3 MG (AS NEEDED, UP TO 4 TIMES PER DAY)
     Route: 048
     Dates: start: 20200325, end: 20200404

REACTIONS (7)
  - Alanine aminotransferase increased [Recovered/Resolved]
  - Alanine aminotransferase increased [Recovered/Resolved]
  - Drug intolerance [Unknown]
  - Pruritus [Unknown]
  - Aspartate aminotransferase increased [Recovered/Resolved]
  - Abdominal pain [Unknown]
  - Aspartate aminotransferase increased [Recovered/Resolved]

NARRATIVE: CASE EVENT DATE: 20200605
